FAERS Safety Report 10930860 (Version 2)
Quarter: 2015Q1

REPORT INFORMATION
  Report Type: Spontaneous
  Country: DE (occurrence: None)
  Receive Date: 20150317
  Receipt Date: 20150319
  Transmission Date: 20150721
  Serious: Yes (Other)
  Sender: FDA-Public Use
  Company Number: SP09174

PATIENT
  Age: 66 Year
  Sex: Male

DRUGS (6)
  1. BETABION [Concomitant]
  2. CARVEDILOL. [Concomitant]
     Active Substance: CARVEDILOL
  3. XIFAXAN [Suspect]
     Active Substance: RIFAXIMIN
     Indication: HEPATIC ENCEPHALOPATHY
     Dosage: 1100 MG (550 MG,2 IN 1 D),ORAL
     Route: 048
     Dates: start: 20141205, end: 20141215
  4. PANTOZOL [Concomitant]
     Active Substance: PANTOPRAZOLE SODIUM
  5. NOVODIGAL [Concomitant]
     Active Substance: .BETA.-ACETYLDIGOXIN
  6. SPIRONOLACTON [Concomitant]
     Active Substance: SPIRONOLACTONE

REACTIONS (2)
  - Disorientation [None]
  - Catatonia [None]

NARRATIVE: CASE EVENT DATE: 20141213
